FAERS Safety Report 8003203-2 (Version None)
Quarter: 2011Q4

REPORT INFORMATION
  Report Type: 
  Country: None (occurrence: None)
  Receive Date: 20111222
  Receipt Date: 20111213
  Transmission Date: 20120403
  Serious: Yes (Hospitalization)
  Sender: FDA-Public Use
  Company Number: NO-SANOFI-AVENTIS-2011SA081750

PATIENT
  Age: 58 Year
  Sex: Male

DRUGS (2)
  1. METFORMIN HCL [Concomitant]
     Indication: TYPE 2 DIABETES MELLITUS
  2. AMARYL [Suspect]
     Route: 048
     Dates: start: 20050901, end: 20100201

REACTIONS (3)
  - HEPATIC CIRRHOSIS [None]
  - DIARRHOEA [None]
  - LIVER FUNCTION TEST ABNORMAL [None]
